FAERS Safety Report 11512323 (Version 1)
Quarter: 2015Q3

REPORT INFORMATION
  Report Type: Spontaneous
  Country: US (occurrence: None)
  Receive Date: 20150914
  Receipt Date: 20150914
  Transmission Date: 20151125
  Serious: Yes (Hospitalization)
  Sender: FDA-Public Use
  Company Number: CPI 7060

PATIENT
  Age: 62 Year
  Sex: Male

DRUGS (3)
  1. LACTULOSE UNKNOWN STR + MFR [Suspect]
     Active Substance: LACTULOSE
     Indication: HEPATIC ENCEPHALOPATHY
  2. OCTREOTIDE. [Concomitant]
     Active Substance: OCTREOTIDE
  3. PROTON PUMP INHIBITOR [Concomitant]
     Active Substance: UNSPECIFIED INGREDIENT

REACTIONS (6)
  - Hypotension [None]
  - Haematocrit decreased [None]
  - Shock haemorrhagic [None]
  - Gastrointestinal haemorrhage [None]
  - Encephalopathy [None]
  - Depressed level of consciousness [None]

NARRATIVE: CASE EVENT DATE: 2014
